FAERS Safety Report 8570094-0 (Version None)
Quarter: 2012Q3

REPORT INFORMATION
  Report Type: 
  Country: None (occurrence: None)
  Receive Date: 20120803
  Receipt Date: 20120612
  Transmission Date: 20120928
  Serious: No
  Sender: FDA-Public Use
  Company Number: US-ABBOTT-12P-163-0945552-00

PATIENT
  Sex: Female
  Weight: 83.082 kg

DRUGS (5)
  1. NIASPAN [Suspect]
     Route: 048
  2. NIASPAN [Suspect]
     Indication: BLOOD DISORDER
     Route: 048
     Dates: start: 20100101
  3. PRAVASTATIN [Concomitant]
     Indication: PRODUCT USED FOR UNKNOWN INDICATION
  4. NIASPAN [Suspect]
     Indication: LOW DENSITY LIPOPROTEIN INCREASED
     Route: 048
     Dates: start: 20120601
  5. UNKNOWN MEDICATION [Concomitant]
     Indication: BLOOD PRESSURE

REACTIONS (3)
  - BACK DISORDER [None]
  - MYALGIA [None]
  - FLUSHING [None]
